FAERS Safety Report 25422915 (Version 3)
Quarter: 2025Q3

REPORT INFORMATION
  Report Type: Spontaneous
  Country: CN (occurrence: CN)
  Receive Date: 20250611
  Receipt Date: 20250730
  Transmission Date: 20251021
  Serious: Yes (Hospitalization)
  Sender: PFIZER
  Company Number: CN-MLMSERVICE-20250529-PI524156-00232-2

PATIENT
  Age: 59 Year
  Sex: Female

DRUGS (23)
  1. METHYLPREDNISOLONE SODIUM SUCCINATE [Suspect]
     Active Substance: METHYLPREDNISOLONE SODIUM SUCCINATE
     Indication: Immunomodulatory therapy
     Dosage: 20 MG, DAILY. 5D TO 15D
     Route: 041
  2. METHYLPREDNISOLONE SODIUM SUCCINATE [Suspect]
     Active Substance: METHYLPREDNISOLONE SODIUM SUCCINATE
     Dosage: 80 MG, DAILY. 15D-20D
     Route: 041
  3. METHYLPREDNISOLONE SODIUM SUCCINATE [Suspect]
     Active Substance: METHYLPREDNISOLONE SODIUM SUCCINATE
     Dosage: 40 MG, DAILY. 20D-25D
     Route: 041
  4. METHYLPREDNISOLONE SODIUM SUCCINATE [Suspect]
     Active Substance: METHYLPREDNISOLONE SODIUM SUCCINATE
     Dosage: 32 MG, DAILY. 25D-30D
     Route: 041
  5. METHYLPREDNISOLONE SODIUM SUCCINATE [Suspect]
     Active Substance: METHYLPREDNISOLONE SODIUM SUCCINATE
     Dosage: 28 MG, DAILY. 30D-40D
     Route: 041
  6. METHYLPREDNISOLONE SODIUM SUCCINATE [Suspect]
     Active Substance: METHYLPREDNISOLONE SODIUM SUCCINATE
     Dosage: 24 MG, DAILY. 40D-60D
     Route: 041
  7. METHYLPREDNISOLONE SODIUM SUCCINATE [Suspect]
     Active Substance: METHYLPREDNISOLONE SODIUM SUCCINATE
     Dosage: 40 MG QD: 30 MAY TO 5D
     Route: 041
  8. METHYLPREDNISOLONE SODIUM SUCCINATE [Suspect]
     Active Substance: METHYLPREDNISOLONE SODIUM SUCCINATE
     Dosage: 22 MG, 1X/DAY
     Route: 041
  9. METHYLPREDNISOLONE SODIUM SUCCINATE [Suspect]
     Active Substance: METHYLPREDNISOLONE SODIUM SUCCINATE
     Dosage: 40 MG, 1X/DAY
     Route: 041
  10. METHYLPREDNISOLONE SODIUM SUCCINATE [Suspect]
     Active Substance: METHYLPREDNISOLONE SODIUM SUCCINATE
     Dosage: 40 MG, DAILY (DAY 6-10)
     Route: 041
  11. METHYLPREDNISOLONE SODIUM SUCCINATE [Suspect]
     Active Substance: METHYLPREDNISOLONE SODIUM SUCCINATE
     Dosage: 32 MG, DAILY (DAY 11-20)
     Route: 041
  12. METHYLPREDNISOLONE SODIUM SUCCINATE [Suspect]
     Active Substance: METHYLPREDNISOLONE SODIUM SUCCINATE
     Dosage: 24 MG, DAILY. 40D-60D (DAY 21 ONWARD)
     Route: 041
  13. TOFACITINIB CITRATE [Suspect]
     Active Substance: TOFACITINIB CITRATE
     Indication: Dermatomyositis
     Dosage: 50 MG, 2X/DAY
  14. TOCILIZUMAB [Suspect]
     Active Substance: TOCILIZUMAB
     Indication: Hyperferritinaemia
     Route: 042
  15. MYCOPHENOLATE MOFETIL [Suspect]
     Active Substance: MYCOPHENOLATE MOFETIL
     Indication: Immunosuppressant drug therapy
     Dosage: 750 MG, 2X/DAY
  16. TACROLIMUS [Suspect]
     Active Substance: TACROLIMUS
     Indication: Immunosuppressant drug therapy
     Dosage: 1 G, 2X/DAY
  17. TACROLIMUS [Suspect]
     Active Substance: TACROLIMUS
     Dosage: 1 G, 1X/DAY (1 GRAM QD)
  18. TACROLIMUS [Suspect]
     Active Substance: TACROLIMUS
     Dosage: 0.5 G, 1X/DAY (1 GRAM QD)
  19. PANTOPRAZOLE [Concomitant]
     Active Substance: PANTOPRAZOLE
     Indication: Gastrointestinal disorder
     Dosage: 40 MG, DAILY
     Route: 042
  20. MOSAPRIDE [Concomitant]
     Active Substance: MOSAPRIDE
     Indication: Gastrointestinal disorder
     Dosage: 5 MG, 3X/DAY
     Route: 048
  21. SULFAMETHOXAZOLE [Concomitant]
     Active Substance: SULFAMETHOXAZOLE
     Indication: Antifungal prophylaxis
     Dosage: 80 MG, 2X/DAY
  22. MOXIFLOXACIN [Concomitant]
     Active Substance: MOXIFLOXACIN
     Indication: Antibiotic therapy
     Dosage: 400 MG, DAILY
     Route: 042
  23. MEROPENEM [Concomitant]
     Active Substance: MEROPENEM
     Dosage: Q8H

REACTIONS (10)
  - Pseudomonas infection [Recovering/Resolving]
  - Stenotrophomonas infection [Recovering/Resolving]
  - Nocardiosis [Recovering/Resolving]
  - Aspergillus infection [Recovering/Resolving]
  - Cytomegalovirus infection reactivation [Recovering/Resolving]
  - Pneumonia [Recovering/Resolving]
  - Pericardial effusion [Recovering/Resolving]
  - Thrombocytopenia [Recovering/Resolving]
  - Coagulopathy [Recovering/Resolving]
  - Sepsis [Recovering/Resolving]
